FAERS Safety Report 8519036-4 (Version None)
Quarter: 2012Q3

REPORT INFORMATION
  Report Type: 
  Country: None (occurrence: None)
  Receive Date: 20120718
  Receipt Date: 20120712
  Transmission Date: 20120928
  Serious: Yes (Other)
  Sender: FDA-Public Use
  Company Number: PHHY2012US060015

PATIENT
  Age: 80 Year
  Sex: Female

DRUGS (1)
  1. CHLORPROMAZINE HCL [Suspect]
     Indication: PAIN
     Dosage: 1.5 ML, UNK
     Route: 056

REACTIONS (9)
  - LAGOPHTHALMOS [None]
  - CORNEAL EPITHELIUM DEFECT [None]
  - CONJUNCTIVAL OEDEMA [None]
  - HYPOAESTHESIA EYE [None]
  - ERYTHEMA OF EYELID [None]
  - EYELID OEDEMA [None]
  - ULCERATIVE KERATITIS [None]
  - NEUROTROPHIC KERATOPATHY [None]
  - PERIORBITAL OEDEMA [None]
